FAERS Safety Report 6785765-6 (Version None)
Quarter: 2010Q2

REPORT INFORMATION
  Report Type: 
  Country: None (occurrence: None)
  Receive Date: 20100622
  Receipt Date: 20100622
  Transmission Date: 20101027
  Serious: Yes (Hospitalization)
  Sender: FDA-Public Use
  Company Number: None

PATIENT
  Age: 48 Year
  Sex: Male
  Weight: 79.7 kg

DRUGS (5)
  1. LITHIUM CARBONATE [Suspect]
     Indication: BIPOLAR DISORDER
     Dosage: 1200MG BID PO CHRONIC
     Route: 048
  2. LEVOTHYROXINE SODIUM [Concomitant]
  3. TRICOR [Concomitant]
  4. LISINOPRIL [Concomitant]
  5. IMODIUM [Concomitant]

REACTIONS (3)
  - MENTAL STATUS CHANGES [None]
  - RENAL FAILURE [None]
  - THERAPEUTIC AGENT TOXICITY [None]
